FAERS Safety Report 6112081-8 (Version None)
Quarter: 2009Q1

REPORT INFORMATION
  Report Type: 
  Country: None (occurrence: None)
  Receive Date: 20090311
  Receipt Date: 20090227
  Transmission Date: 20090719
  Serious: Yes (Hospitalization)
  Sender: FDA-Public Use
  Company Number: FR-PFIZER INC-2009177523

PATIENT

DRUGS (10)
  1. LYRICA [Suspect]
     Indication: NEURALGIA
     Dosage: 150 MG, 3X/DAY
     Route: 048
     Dates: start: 20060101
  2. CYMBALTA [Suspect]
     Indication: NEURALGIA
     Dosage: 60 MG, 1X/DAY
     Route: 048
     Dates: start: 20080601
  3. LAROXYL [Suspect]
     Dosage: 75 MG, 1X/DAY
     Route: 048
     Dates: start: 20070101
  4. CLONAZEPAM [Suspect]
     Indication: NEURALGIA
     Dosage: 25 GTT, 1X/DAY
     Route: 048
     Dates: start: 20070101
  5. AMLOR [Concomitant]
     Dosage: 5 MG, 1X/DAY
     Route: 048
  6. DIAMICRON [Concomitant]
     Dosage: 60 MG, 1X/DAY
     Route: 048
  7. TAHOR [Concomitant]
     Dosage: 20 MG, 1X/DAY
     Route: 048
  8. STRONTIUM RANELATE [Concomitant]
     Dosage: UNK
     Route: 048
  9. BIPRETERAX [Concomitant]
     Dosage: UNK
     Route: 048
  10. PLAVIX [Concomitant]
     Dosage: 75 MG, 1X/DAY
     Route: 048

REACTIONS (1)
  - FALL [None]
